FAERS Safety Report 5011295-8 (Version None)
Quarter: 2006Q2

REPORT INFORMATION
  Report Type: 
  Country: None (occurrence: None)
  Receive Date: 20060524
  Receipt Date: 20060426
  Transmission Date: 20061013
  Serious: Yes (Hospitalization)
  Sender: FDA-Public Use
  Company Number: S06-USA-01658-01

PATIENT
  Age: 77 Year
  Sex: Male
  Weight: 71.2147 kg

DRUGS (13)
  1. NAMENDA [Suspect]
     Indication: DEMENTIA
     Dosage: 5 MG QD PO
     Route: 048
     Dates: start: 20030101, end: 20030101
  2. NAMENDA [Suspect]
     Indication: DEMENTIA
     Dosage: 5 MG BID PO
     Route: 048
     Dates: start: 20030101, end: 20030101
  3. NAMENDA [Suspect]
     Indication: DEMENTIA
     Dosage: 15 MG QD PO
     Route: 048
     Dates: start: 20030101, end: 20030101
  4. NAMENDA [Suspect]
     Indication: DEMENTIA
     Dosage: 10 MG BID PO
     Route: 048
     Dates: start: 20030101, end: 20060413
  5. ZETIA [Suspect]
     Indication: BLOOD CHOLESTEROL INCREASED
     Dates: start: 20021201, end: 20051201
  6. GLYBURIDE [Concomitant]
  7. LUPRON [Concomitant]
  8. FOSAMAX [Concomitant]
  9. GLUCOVANCE (GLYBURIDE/METFORMIN) [Concomitant]
  10. ASPIRIN [Concomitant]
  11. HERBAL SUPPLEMENT (NOS) [Concomitant]
  12. MULTIVITAMIN (NOS) [Concomitant]
  13. STOOL SOFTENER (DOCUSATE SODIUM) [Concomitant]

REACTIONS (15)
  - ATRIAL FIBRILLATION [None]
  - COGNITIVE DISORDER [None]
  - CONFUSIONAL STATE [None]
  - DRUG INTOLERANCE [None]
  - DYSARTHRIA [None]
  - FALL [None]
  - FATIGUE [None]
  - GAIT DISTURBANCE [None]
  - HEART RATE IRREGULAR [None]
  - HIP FRACTURE [None]
  - INJURY [None]
  - MEMORY IMPAIRMENT [None]
  - RIB FRACTURE [None]
  - UPPER LIMB FRACTURE [None]
  - URINARY TRACT INFECTION [None]
